FAERS Safety Report 5534402-7 (Version None)
Quarter: 2007Q4

REPORT INFORMATION
  Report Type: 
  Country: None (occurrence: None)
  Receive Date: 20071205
  Receipt Date: 20071119
  Transmission Date: 20080405
  Serious: Yes (Hospitalization)
  Sender: FDA-Public Use
  Company Number: US-BAYER-US-2007-043563

PATIENT

DRUGS (1)
  1. BETASERON [Suspect]

REACTIONS (1)
  - CEREBROVASCULAR ACCIDENT [None]
